FAERS Safety Report 7286164 (Version 3)
Quarter: 2014Q2

REPORT INFORMATION
  Report Type: Report from Study
  Country: NL (occurrence: NL)
  Receive Date: 20100219
  Receipt Date: 20140611
  Transmission Date: 20141212
  Serious: Yes (Life-Threatening, Hospitalization)
  Sender: FDA-Public Use
  Company Number: NL-ROCHE-667863

PATIENT
  Age: 70 Year
  Sex: 0

DRUGS (11)
  1. CAPECITABINE [Suspect]
     Indication: GASTRIC CANCER
     Dosage: DOSE: 4/3
     Route: 048
     Dates: start: 20090908, end: 20091020
  2. CAPECITABINE [Suspect]
     Indication: GASTROOESOPHAGEAL CANCER
  3. EPIRUBICIN [Suspect]
     Indication: GASTRIC CANCER
     Route: 042
     Dates: start: 20090908, end: 20091020
  4. EPIRUBICIN [Suspect]
     Indication: GASTROOESOPHAGEAL CANCER
  5. CISPLATIN [Suspect]
     Indication: GASTRIC CANCER
     Route: 042
     Dates: start: 20090908, end: 20091020
  6. CISPLATIN [Suspect]
     Indication: GASTROOESOPHAGEAL CANCER
  7. LEXAPRO [Concomitant]
     Dosage: DRUG: LEXAPRO 20 UG.
     Route: 048
  8. LABETALOL [Concomitant]
     Dosage: DRUG: LABETALOL 50 MG.
     Route: 048
  9. FRAXODI [Concomitant]
     Route: 065
  10. NOVORAPID [Concomitant]
     Route: 058
  11. LANTUS [Concomitant]
     Route: 058

REACTIONS (4)
  - Hyperglycaemia [Recovered/Resolved]
  - Feeding tube complication [Recovered/Resolved]
  - Venous thrombosis [Recovered/Resolved]
  - Haematemesis [Recovered/Resolved]
